FAERS Safety Report 8249193-9 (Version None)
Quarter: 2012Q1

REPORT INFORMATION
  Report Type: 
  Country: None (occurrence: None)
  Receive Date: 20120328
  Receipt Date: 20120316
  Transmission Date: 20120608
  Serious: Yes (Death)
  Sender: FDA-Public Use
  Company Number: UTC-016307

PATIENT
  Age: 56 Year
  Sex: Female
  Weight: 78.2 kg

DRUGS (5)
  1. COUMADIN [Concomitant]
  2. DIGOXIN [Concomitant]
  3. REVATIO [Concomitant]
  4. TRACLEER [Concomitant]
  5. REMODULIN [Suspect]
     Indication: PULMONARY ARTERIAL HYPERTENSION
     Dosage: 61.2 UG/KG (0.0425 UG/KG,1 IN 1 MIN),INTRAVENOUS
     Route: 042
     Dates: start: 20100403

REACTIONS (1)
  - PULMONARY HYPERTENSION [None]
